FAERS Safety Report 5267989-2 (Version None)
Quarter: 2007Q1

REPORT INFORMATION
  Report Type: 
  Country: None (occurrence: None)
  Receive Date: 20061213
  Receipt Date: 20050909
  Transmission Date: 20070707
  Serious: Yes (Hospitalization)
  Sender: FDA-Public Use
  Company Number: 2005UW13776

PATIENT
  Sex: Female
  Weight: 51.4833 kg

DRUGS (15)
  1. IRESSA [Suspect]
     Indication: PANCREATIC CARCINOMA
     Dosage: 250 MG DAILY PO
     Route: 048
     Dates: start: 20050630, end: 20050809
  2. PACLITAXEL [Suspect]
     Indication: PANCREATIC CARCINOMA
     Dosage: 66 MG WEEK IV
     Route: 042
     Dates: start: 20050712, end: 20050801
  3. RADIATION THERAPY [Suspect]
     Indication: PANCREATIC CARCINOMA
     Dosage: TEMPORARILY WITHHELD
     Dates: start: 20050711, end: 20050805
  4. RADIATION THERAPY [Suspect]
     Indication: PANCREATIC CARCINOMA
     Dosage: NI
     Dates: start: 20050809, end: 20050809
  5. PHENERGAN HCL [Concomitant]
  6. DEXAMETHASONE [Concomitant]
  7. FENTANYL TRANSDERMAL SYSTEM [Concomitant]
  8. SCOPOLAMINE PATCH [Concomitant]
  9. ZOFRAN [Concomitant]
  10. ATIVAN [Concomitant]
  11. NITROGLYCERIN [Concomitant]
  12. GLYBURIDE [Concomitant]
  13. METAFORMIN [Concomitant]
  14. PROZAC [Concomitant]
  15. ASPIRIN [Concomitant]

REACTIONS (4)
  - DEHYDRATION [None]
  - DIARRHOEA [None]
  - NAUSEA [None]
  - VOMITING [None]
